FAERS Safety Report 4525238-4 (Version None)
Quarter: 2004Q4

REPORT INFORMATION
  Report Type: 
  Country: None (occurrence: None)
  Receive Date: 20041116
  Receipt Date: 20040917
  Transmission Date: 20050328
  Serious: No
  Sender: FDA-Public Use
  Company Number: S04-USA-06198-01

PATIENT
  Age: 75 Year
  Sex: Male

DRUGS (11)
  1. NAMENDA [Suspect]
     Indication: DEMENTIA
     Dosage: 10 MG BID PO
     Route: 048
     Dates: start: 20040903
  2. NAMENDA [Suspect]
     Indication: DEMENTIA
     Dosage: 5 MG QD PO
     Route: 048
     Dates: start: 20040813, end: 20040819
  3. NAMENDA [Suspect]
     Indication: DEMENTIA
     Dosage: 5 MG BID PO
     Route: 048
     Dates: start: 20040820, end: 20040826
  4. NAMENDA [Suspect]
     Indication: DEMENTIA
     Dosage: 10 MG QAM PO
     Route: 048
     Dates: start: 20040827, end: 20040902
  5. NAMENDA [Suspect]
     Indication: DEMENTIA
     Dosage: 5 MG QHS PO
     Route: 048
     Dates: start: 20040827, end: 20040902
  6. DETROL [Concomitant]
  7. PROZAC [Concomitant]
  8. GLIPIZIDE [Concomitant]
  9. MULTIVITAMIN [Concomitant]
  10. GLUCOSAMINE [Concomitant]
  11. ASPIRIN [Concomitant]

REACTIONS (2)
  - DIPLOPIA [None]
  - DIZZINESS [None]
